FAERS Safety Report 9319879 (Version 1)
Quarter: 2013Q2

REPORT INFORMATION
  Report Type: Spontaneous
  Country: US (occurrence: US)
  Receive Date: 20130530
  Receipt Date: 20130530
  Transmission Date: 20140414
  Serious: No
  Sender: FDA-Public Use
  Company Number: US-TEVA-407404USA

PATIENT
  Sex: Male

DRUGS (2)
  1. TREANDA [Suspect]
     Indication: LYMPHOMA
  2. TREANDA [Suspect]

REACTIONS (2)
  - Night sweats [Unknown]
  - Lymphadenopathy [Unknown]
